FAERS Safety Report 7791973-8 (Version None)
Quarter: 2011Q4

REPORT INFORMATION
  Report Type: 
  Country: None (occurrence: None)
  Receive Date: 20111003
  Receipt Date: 20110927
  Transmission Date: 20120403
  Serious: Yes (Death, Other)
  Sender: FDA-Public Use
  Company Number: US-AMGEN-USASP2011047823

PATIENT
  Sex: Male

DRUGS (2)
  1. VINCRISTINE [Concomitant]
  2. NPLATE [Suspect]
     Indication: IDIOPATHIC THROMBOCYTOPENIC PURPURA
     Dosage: 10 MUG/KG, UNK
     Dates: start: 20090429, end: 20110429

REACTIONS (2)
  - LUNG NEOPLASM MALIGNANT [None]
  - THERAPEUTIC RESPONSE DECREASED [None]
